FAERS Safety Report 15505235 (Version 5)
Quarter: 2020Q2

REPORT INFORMATION
  Report Type: Spontaneous
  Country: PT (occurrence: PT)
  Receive Date: 20181016
  Receipt Date: 20200412
  Transmission Date: 20200713
  Serious: Yes (Hospitalization, Other)
  Sender: FDA-Public Use
  Company Number: PT-BRISTOL-MYERS SQUIBB COMPANY-BMS-2018-094211

PATIENT
  Age: 68 Year
  Sex: Male

DRUGS (12)
  1. IBUPROFEN. [Interacting]
     Active Substance: IBUPROFEN
     Indication: MYALGIA
     Dosage: 2 TAB, 1 DAY
     Route: 048
  2. DIAZEPAM. [Interacting]
     Active Substance: DIAZEPAM
     Indication: PRODUCT USED FOR UNKNOWN INDICATION
     Dosage: 5 MILLIGRAM, QD
     Route: 065
  3. GLICLAZIDE [Suspect]
     Active Substance: GLICLAZIDE
     Indication: PRODUCT USED FOR UNKNOWN INDICATION
     Dosage: 30 MG, BID
     Route: 065
  4. METFORMIN HYDROCHLORIDE. [Suspect]
     Active Substance: METFORMIN HYDROCHLORIDE
     Indication: PRODUCT USED FOR UNKNOWN INDICATION
     Dosage: 3000 MG, QD
     Route: 065
  5. AMLODIPINE [Interacting]
     Active Substance: AMLODIPINE BESYLATE
     Indication: PRODUCT USED FOR UNKNOWN INDICATION
     Dosage: 5 MG, QD
     Route: 065
  6. ACETYLSALICYLIC ACID [Suspect]
     Active Substance: ASPIRIN
     Indication: PRODUCT USED FOR UNKNOWN INDICATION
     Dosage: 150 MILLIGRAM, QD
     Route: 065
  7. ENALAPRIL, HYDROCHLOROTHIAZIDE [Interacting]
     Active Substance: ENALAPRIL\HYDROCHLOROTHIAZIDE
     Indication: PRODUCT USED FOR UNKNOWN INDICATION
     Dosage: 1 DOSAGE FORM, QD,
     Route: 065
  8. ARTICHOKE [CYNARA CARDUNCULUS LEAF] [Interacting]
     Active Substance: HERBALS
     Indication: BLOOD URIC ACID INCREASED
     Route: 065
  9. CLONIXINE [Interacting]
     Active Substance: CLONIXIN
     Indication: GOUT
     Dosage: 300 MG, UNK
     Route: 048
  10. ARTICHOKE [CYNARA CARDUNCULUS LEAF] [Interacting]
     Active Substance: HERBALS
     Indication: GOUT
     Dosage: 1.5 LITER, QD
     Route: 048
  11. COLCHICINE. [Interacting]
     Active Substance: COLCHICINE
     Indication: GOUT
     Dosage: 0.5 MILLIGRAM, QID (4 DF)
     Route: 048
  12. INDAPAMIDE. [Interacting]
     Active Substance: INDAPAMIDE
     Indication: PRODUCT USED FOR UNKNOWN INDICATION
     Dosage: 2.5 MG, 1 DAY
     Route: 065

REACTIONS (6)
  - Herbal interaction [Recovered/Resolved]
  - Myalgia [Recovered/Resolved]
  - Haematotoxicity [Recovered/Resolved]
  - Hepatotoxicity [Recovered/Resolved]
  - Diabetes mellitus inadequate control [Recovered/Resolved]
  - Therapeutic product effect decreased [Recovered/Resolved]
